FAERS Safety Report 25962507 (Version 1)
Quarter: 2025Q4

REPORT INFORMATION
  Report Type: Spontaneous
  Country: EU (occurrence: EU)
  Receive Date: 20251027
  Receipt Date: 20251027
  Transmission Date: 20260117
  Serious: Yes (Life-Threatening, Other)
  Sender: HIKMA
  Company Number: None

PATIENT
  Age: 52 Year
  Sex: Male
  Weight: 59 kg

DRUGS (3)
  1. CISPLATIN [Suspect]
     Active Substance: CISPLATIN
     Dosage: 165 MILLIGRAM
     Route: 042
     Dates: start: 20250612, end: 20250612
  2. CISPLATIN [Suspect]
     Active Substance: CISPLATIN
     Dosage: 169 MILLIGRAM
     Route: 042
     Dates: start: 20250519, end: 20250519
  3. CISPLATIN [Suspect]
     Active Substance: CISPLATIN
     Indication: Squamous cell carcinoma
     Dosage: 170 MILLIGRAM
     Route: 042
     Dates: start: 20250429, end: 20250429

REACTIONS (4)
  - Spontaneous splenic rupture [Recovered/Resolved with Sequelae]
  - Shock haemorrhagic [Recovered/Resolved]
  - Splenectomy [Recovered/Resolved with Sequelae]
  - Transfusion [Recovered/Resolved with Sequelae]

NARRATIVE: CASE EVENT DATE: 20250527
